FAERS Safety Report 8490144-X (Version None)
Quarter: 2012Q2

REPORT INFORMATION
  Report Type: 
  Country: None (occurrence: None)
  Receive Date: 20120626
  Receipt Date: 20120614
  Transmission Date: 20120825
  Serious: Yes (Hospitalization, Other)
  Sender: FDA-Public Use
  Company Number: 2012SP033041

PATIENT
  Sex: Male

DRUGS (3)
  1. PEG-INTRON [Suspect]
     Indication: HEPATITIS C
     Dates: start: 20120326
  2. VICTRELIS [Suspect]
     Indication: HEPATITIS C
     Dates: start: 20120424
  3. RIBAVIRIN [Suspect]
     Indication: HEPATITIS C
     Dates: start: 20120326

REACTIONS (12)
  - CONDITION AGGRAVATED [None]
  - PHARYNGITIS [None]
  - BACTERIAL INFECTION [None]
  - ARTHRALGIA [None]
  - CHEST PAIN [None]
  - DYSPNOEA [None]
  - FACE OEDEMA [None]
  - FATIGUE [None]
  - ORAL CANDIDIASIS [None]
  - ANAEMIA [None]
  - GASTROOESOPHAGEAL REFLUX DISEASE [None]
  - DYSPHAGIA [None]
